FAERS Safety Report 6111443-2 (Version None)
Quarter: 2009Q1

REPORT INFORMATION
  Report Type: 
  Country: None (occurrence: None)
  Receive Date: 20090311
  Receipt Date: 20090304
  Transmission Date: 20090719
  Serious: Yes (Life-Threatening, Hospitalization)
  Sender: FDA-Public Use
  Company Number: ES-CELGENEUS-144-C5013-07081895

PATIENT
  Sex: Male
  Weight: 88.3 kg

DRUGS (7)
  1. CC-5013 [Suspect]
     Indication: MULTIPLE MYELOMA
     Route: 048
     Dates: start: 20070611, end: 20070827
  2. DEXAMETHASONE [Suspect]
     Indication: MULTIPLE MYELOMA
     Route: 048
     Dates: start: 20070611, end: 20070827
  3. ENALAPRIL [Concomitant]
     Route: 048
     Dates: end: 20070829
  4. SINTROM [Concomitant]
     Dosage: UNKNOWN
     Route: 065
     Dates: end: 20070825
  5. TAVANIC [Concomitant]
     Indication: DRUG USE FOR UNKNOWN INDICATION
     Route: 065
  6. CIPROFLOXACIN [Concomitant]
     Indication: INFECTION PROPHYLAXIS
     Route: 065
     Dates: end: 20070827
  7. LEVOFLOXACIN [Concomitant]
     Indication: INFECTION PROPHYLAXIS
     Route: 065
     Dates: start: 20070806, end: 20070827

REACTIONS (1)
  - ANGINA UNSTABLE [None]
